FAERS Safety Report 5734671-4 (Version None)
Quarter: 2008Q2

REPORT INFORMATION
  Report Type: 
  Country: None (occurrence: None)
  Receive Date: 20080512
  Receipt Date: 20080501
  Transmission Date: 20081010
  Serious: Yes (Other)
  Sender: FDA-Public Use
  Company Number: US-ROCHE-562388

PATIENT

DRUGS (1)
  1. CELLCEPT [Suspect]
     Dosage: HAS BEEN ON FOR THE PAST 4 YEARS.
     Route: 065
     Dates: start: 20040101

REACTIONS (1)
  - JOINT ARTHROPLASTY [None]
